FAERS Safety Report 14517015 (Version 1)
Quarter: 2018Q1

REPORT INFORMATION
  Report Type: Report from Study
  Country: US (occurrence: US)
  Receive Date: 20180212
  Receipt Date: 20180212
  Transmission Date: 20180509
  Serious: Yes (Hospitalization, Other)
  Sender: FDA-Public Use
  Company Number: US-GILEAD-2018-0320409

PATIENT
  Age: 55 Year
  Sex: Female

DRUGS (2)
  1. AMBRISENTAN [Suspect]
     Active Substance: AMBRISENTAN
     Indication: PRODUCT USED FOR UNKNOWN INDICATION
     Dosage: 10 MG, QD
     Route: 065
     Dates: start: 20160707
  2. XARELTO [Concomitant]
     Active Substance: RIVAROXABAN

REACTIONS (7)
  - Sepsis [Unknown]
  - Pulmonary hypertension [Unknown]
  - Pneumonia [Unknown]
  - Thoracic vertebral fracture [Unknown]
  - Anaemia [Unknown]
  - Renal failure [Unknown]
  - Vitamin D deficiency [Unknown]
